FAERS Safety Report 9671265 (Version 1)
Quarter: 2013Q4

REPORT INFORMATION
  Report Type: Spontaneous
  Country: US (occurrence: None)
  Receive Date: 20131105
  Receipt Date: 20131105
  Transmission Date: 20140711
  Serious: Yes (Disabling)
  Sender: FDA-Public Use
  Company Number: None

PATIENT
  Age: 23 Day
  Sex: Female
  Weight: 68.04 kg

DRUGS (1)
  1. ACETAZOLAMIDE [Suspect]
     Indication: CYSTOID MACULAR OEDEMA
     Route: 048
     Dates: start: 20131001, end: 20131004

REACTIONS (6)
  - Paraesthesia [None]
  - Pain in extremity [None]
  - Pain in extremity [None]
  - Hyperaesthesia [None]
  - Gait disturbance [None]
  - Sleep disorder [None]
